FAERS Safety Report 9425468 (Version 1)
Quarter: 2013Q3

REPORT INFORMATION
  Report Type: Spontaneous
  Country: BR (occurrence: BR)
  Receive Date: 20130729
  Receipt Date: 20130729
  Transmission Date: 20140515
  Serious: Yes (Other)
  Sender: FDA-Public Use
  Company Number: BR-ABBOTT-13P-020-1123883-00

PATIENT
  Age: 34 Year
  Sex: Female
  Weight: 84 kg

DRUGS (3)
  1. HUMIRA [Suspect]
     Indication: ANKYLOSING SPONDYLITIS
     Route: 058
     Dates: start: 201111, end: 201301
  2. CHLOROQUINE [Concomitant]
     Indication: AUTOIMMUNE DISORDER
     Route: 048
     Dates: start: 201207
  3. AZATHIOPRINE [Concomitant]
     Indication: AUTOIMMUNE DISORDER
     Dosage: 1 TABLET IN THE MORNING AND 1 TABLET AT NIGHT
     Route: 048
     Dates: start: 201207

REACTIONS (5)
  - Benign neoplasm of thyroid gland [Unknown]
  - Thyroid adenoma [Unknown]
  - Cholelithiasis [Unknown]
  - Arthritis [Recovering/Resolving]
  - Inflammation [Recovering/Resolving]
